FAERS Safety Report 19985372 (Version 1)
Quarter: 2021Q4

REPORT INFORMATION
  Report Type: Spontaneous
  Country: US (occurrence: US)
  Receive Date: 20211022
  Receipt Date: 20211022
  Transmission Date: 20220303
  Serious: No
  Sender: FDA-Public Use
  Company Number: US-PFIZER INC-2021450867

PATIENT
  Age: 33 Year
  Sex: Male
  Weight: 142.88 kg

DRUGS (5)
  1. INLYTA [Suspect]
     Active Substance: AXITINIB
     Indication: Renal cancer
     Dosage: 5 MG, 2X/DAY (EVERY 12 HOURS)
     Route: 048
     Dates: start: 20210309
  2. IMODIUM A-D [Concomitant]
     Active Substance: LOPERAMIDE HYDROCHLORIDE
     Dosage: 1MG/7.5ML LIQUID
  3. CLARITIN [Concomitant]
     Active Substance: LORATADINE
     Dosage: 10 MG
  4. IBUPROFEN [Concomitant]
     Active Substance: IBUPROFEN
     Dosage: 200 MG
  5. TYLENOL [Concomitant]
     Active Substance: ACETAMINOPHEN
     Dosage: 325 MG

REACTIONS (3)
  - Nasal congestion [Unknown]
  - Increased upper airway secretion [Unknown]
  - Fatigue [Unknown]
